FAERS Safety Report 5170802-5 (Version None)
Quarter: 2006Q4

REPORT INFORMATION
  Report Type: 
  Country: None (occurrence: None)
  Receive Date: 20061205
  Receipt Date: 20061205
  Transmission Date: 20070319
  Serious: No
  Sender: FDA-Public Use
  Company Number: None

PATIENT
  Age: 34 Year
  Sex: Male
  Weight: 77.1115 kg

DRUGS (1)
  1. DIPHENHYDRAMINE HCL 25 MG LEINER/EQUATE [Suspect]
     Indication: SLEEP DISORDER THERAPY
     Dosage: 2 X 25 MG ONCE PO
     Route: 048
     Dates: start: 20061203, end: 20061204

REACTIONS (2)
  - FEELING ABNORMAL [None]
  - MIDDLE INSOMNIA [None]
